FAERS Safety Report 7189594-3 (Version None)
Quarter: 2010Q4

REPORT INFORMATION
  Report Type: 
  Country: None (occurrence: None)
  Receive Date: 20101223
  Receipt Date: 20101217
  Transmission Date: 20110411
  Serious: No
  Sender: FDA-Public Use
  Company Number: US-BIOGENIDEC-2010BI032355

PATIENT
  Age: 47 Year
  Sex: Female

DRUGS (1)
  1. TYSABRI [Suspect]
     Indication: MULTIPLE SCLEROSIS
     Route: 042
     Dates: start: 20100714, end: 20100908

REACTIONS (5)
  - ABASIA [None]
  - ASTHENIA [None]
  - MOBILITY DECREASED [None]
  - MULTIPLE SCLEROSIS [None]
  - VISUAL IMPAIRMENT [None]
